FAERS Safety Report 21247065 (Version 1)
Quarter: 2022Q3

REPORT INFORMATION
  Report Type: Spontaneous
  Country: US (occurrence: None)
  Receive Date: 20220823
  Receipt Date: 20220823
  Transmission Date: 20221026
  Serious: No
  Sender: FDA-Public Use
  Company Number: None

PATIENT
  Sex: Male
  Weight: 48.6 kg

DRUGS (8)
  1. ASENAPINE [Suspect]
     Active Substance: ASENAPINE
     Indication: Bipolar I disorder
     Dosage: FREQUENCY : DAILY;?
     Route: 048
  2. ROZEREM [Concomitant]
     Active Substance: RAMELTEON
     Dates: start: 20211112
  3. AMLODIPINE [Concomitant]
     Active Substance: AMLODIPINE BESYLATE
     Dates: start: 20130525
  4. CLOPIDOGREL [Concomitant]
     Active Substance: CLOPIDOGREL BISULFATE
     Dates: start: 20130525
  5. ASPIRIN [Concomitant]
     Active Substance: ASPIRIN
     Dates: start: 20131204
  6. ATORVASTATIN [Concomitant]
     Active Substance: ATORVASTATIN
     Dates: start: 20140326
  7. FERROUS SULFATE [Concomitant]
     Active Substance: FERROUS SULFATE
     Dates: start: 20151123
  8. LATANOPROST [Concomitant]
     Active Substance: LATANOPROST
     Dates: start: 20150811

REACTIONS (3)
  - Therapeutic product effect decreased [None]
  - Therapeutic response changed [None]
  - Product substitution issue [None]
